FAERS Safety Report 10750463 (Version 5)
Quarter: 2017Q3

REPORT INFORMATION
  Report Type: Report from Study
  Country: CN (occurrence: CN)
  Receive Date: 20150130
  Receipt Date: 20170904
  Transmission Date: 20171127
  Serious: Yes (Hospitalization)
  Sender: FDA-Public Use
  Company Number: CN-ROCHE-1459330

PATIENT
  Age: 55 Year
  Sex: Male
  Weight: 52 kg

DRUGS (51)
  1. VITAMIN C [Concomitant]
     Active Substance: ASCORBIC ACID
     Indication: BLOOD ELECTROLYTES
     Route: 042
     Dates: start: 20140905, end: 20140905
  2. VITAMIN B6 [Concomitant]
     Active Substance: PYRIDOXINE HYDROCHLORIDE
     Dosage: INDICATION - VITAMIN B6 SUPPLEMENTS
     Route: 042
     Dates: start: 20140927, end: 20140927
  3. INSULIN [Concomitant]
     Active Substance: INSULIN NOS
     Dosage: DOSE: 400 U?INDICATION: PROMOTING ABSORPTION OF GLUCOSE.
     Route: 042
     Dates: start: 20141017, end: 20141020
  4. MOXIFLOXACIN. [Concomitant]
     Active Substance: MOXIFLOXACIN
     Indication: INFECTION
     Route: 042
     Dates: start: 20140906, end: 20140906
  5. VITAMIN C [Concomitant]
     Active Substance: ASCORBIC ACID
     Dosage: INDICATION- PREVENT VITAMIN C DEFICIENCY
     Route: 042
     Dates: start: 20140926, end: 20140926
  6. INSULIN [Concomitant]
     Active Substance: INSULIN NOS
     Dosage: DOSE: 400 U
     Route: 042
     Dates: start: 20140926, end: 20140926
  7. ADEMETIONINE [Concomitant]
     Active Substance: ADEMETIONINE
     Dosage: INDICATION: LIVER PROTECTION
     Route: 048
     Dates: start: 20140916, end: 20140920
  8. RIBOFLAVIN SODIUM PHOSPHATE [Concomitant]
     Route: 042
     Dates: start: 20140926, end: 20140929
  9. GLUCOSE [Concomitant]
     Active Substance: DEXTROSE
     Dosage: INDICATION: REPLENISH ENERGY AND BODY FLUID
     Route: 042
     Dates: start: 20140905, end: 20140907
  10. POTASSIUM CHLORIDE. [Concomitant]
     Active Substance: POTASSIUM CHLORIDE
     Dosage: POTASSIUM SUPPLEMENTS
     Route: 042
     Dates: start: 20140927, end: 20140927
  11. SODIUM CHLORIDE. [Concomitant]
     Active Substance: SODIUM CHLORIDE
     Indication: BLOOD ELECTROLYTES
     Route: 042
     Dates: start: 20140906, end: 20140907
  12. INSULIN [Concomitant]
     Active Substance: INSULIN NOS
     Dosage: DOSE: 12 U??INDICATION: PROMOTE GLUCOSE UTILIZATION
     Route: 042
     Dates: start: 20140905, end: 20140905
  13. VITAMIN B6 [Concomitant]
     Active Substance: PYRIDOXINE HYDROCHLORIDE
     Dosage: INDICATION - VITAMIN B6 SUPPLEMENTS
     Route: 042
     Dates: start: 20141017, end: 20141020
  14. POTASSIUM CHLORIDE. [Concomitant]
     Active Substance: POTASSIUM CHLORIDE
     Dosage: POTASSIUM SUPPLEMENTS
     Route: 042
     Dates: start: 20141017, end: 20141020
  15. LYSINE ASPIRIN [Concomitant]
     Active Substance: ASPIRIN DL-LYSINE
     Indication: PYREXIA
     Route: 042
     Dates: start: 20140905, end: 20140905
  16. TORSEMIDE. [Concomitant]
     Active Substance: TORSEMIDE
     Indication: POLYURIA
     Route: 042
     Dates: start: 20140905, end: 20140905
  17. HUMAN ALBUMIN [Concomitant]
     Active Substance: ALBUMIN HUMAN
     Indication: INFECTION
     Route: 042
     Dates: start: 20140906, end: 20140909
  18. MOXIFLOXACIN. [Concomitant]
     Active Substance: MOXIFLOXACIN
     Indication: INFECTION
     Route: 042
     Dates: start: 20140910, end: 20140910
  19. CISPLATIN. [Suspect]
     Active Substance: CISPLATIN
     Indication: HER-2 POSITIVE GASTRIC CANCER
     Dosage: LAST DOSE PRIOR TO EVENT ON 04/SEP/2014
     Route: 042
     Dates: start: 20140904
  20. LANSOPRAZOLE. [Concomitant]
     Active Substance: LANSOPRAZOLE
     Indication: DYSPEPSIA
     Dosage: INDICATION: GASTRIC MUCOSA
     Route: 042
     Dates: start: 20140820, end: 20140820
  21. LANSOPRAZOLE. [Concomitant]
     Active Substance: LANSOPRAZOLE
     Indication: DYSPEPSIA
     Route: 042
     Dates: start: 20140910, end: 20140910
  22. SODIUM CHLORIDE. [Concomitant]
     Active Substance: SODIUM CHLORIDE
     Indication: BLOOD ELECTROLYTES
     Route: 042
     Dates: start: 20140905, end: 20140905
  23. LACTULOSE. [Concomitant]
     Active Substance: LACTULOSE
     Indication: CONSTIPATION
     Route: 048
     Dates: start: 20140907, end: 20140907
  24. METOCLOPRAMIDE DIHYDROCHLORIDE [Concomitant]
     Dosage: INDICATION: ANTI-NAUSEA
     Route: 030
     Dates: start: 20140926, end: 20140926
  25. SUCRALFATE. [Concomitant]
     Active Substance: SUCRALFATE
     Dosage: INDICATION: PROTECT THE GASTRIC MUCOSA
     Route: 048
     Dates: start: 20140820, end: 20140820
  26. ESTAZOLAM. [Concomitant]
     Active Substance: ESTAZOLAM
     Indication: ANXIETY
     Route: 048
     Dates: start: 20140904, end: 20140904
  27. VITAMIN B6 [Concomitant]
     Active Substance: PYRIDOXINE HYDROCHLORIDE
     Indication: BLOOD ELECTROLYTES
     Route: 042
     Dates: start: 20140905, end: 20140905
  28. POTASSIUM CHLORIDE. [Concomitant]
     Active Substance: POTASSIUM CHLORIDE
     Indication: BLOOD ELECTROLYTES
     Route: 042
     Dates: start: 20140905, end: 20140905
  29. POTASSIUM CHLORIDE. [Concomitant]
     Active Substance: POTASSIUM CHLORIDE
     Indication: BLOOD ELECTROLYTES
     Dosage: INDICATION: POTASSIUM SUPPLEMENT
     Route: 042
     Dates: start: 20140905, end: 20140905
  30. POTASSIUM CHLORIDE. [Concomitant]
     Active Substance: POTASSIUM CHLORIDE
     Dosage: POTASSIUM SUPPLEMENTS
     Route: 042
     Dates: start: 20141017, end: 20141017
  31. INSULIN [Concomitant]
     Active Substance: INSULIN NOS
     Dosage: DOSE: 6 U
     Route: 042
     Dates: start: 20140926, end: 20140927
  32. LYSINE ASPIRIN [Concomitant]
     Active Substance: ASPIRIN DL-LYSINE
     Indication: PYREXIA
     Route: 042
     Dates: start: 20140905, end: 20140905
  33. DOLASETRON MESYLATE [Concomitant]
     Active Substance: DOLASETRON MESYLATE
     Indication: PROPHYLAXIS OF NAUSEA AND VOMITING
     Route: 042
     Dates: start: 20140904
  34. HEPARIN SODIUM. [Concomitant]
     Active Substance: HEPARIN SODIUM
     Dosage: INDICATION: PREVENT BLOOD CLOTS
     Route: 042
     Dates: start: 20140826, end: 20140916
  35. LANSOPRAZOLE. [Concomitant]
     Active Substance: LANSOPRAZOLE
     Indication: PROPHYLAXIS
     Route: 042
     Dates: start: 20140926, end: 20140929
  36. NIFEDIPIN [Concomitant]
     Active Substance: NIFEDIPINE
     Indication: HYPERTENSION
     Route: 060
     Dates: start: 20140904, end: 20140904
  37. VITAMIN C [Concomitant]
     Active Substance: ASCORBIC ACID
     Dosage: INDICATION: VITAMIN C SUPPLEMENTS
     Route: 042
     Dates: start: 20140927, end: 20140927
  38. VITAMIN B6 [Concomitant]
     Active Substance: PYRIDOXINE HYDROCHLORIDE
     Dosage: INDICATION - PREVENT VITAMIN B6 DEFICIENCY
     Route: 042
     Dates: start: 20140926, end: 20140926
  39. POTASSIUM CHLORIDE. [Concomitant]
     Active Substance: POTASSIUM CHLORIDE
     Route: 042
     Dates: start: 20140906, end: 20140910
  40. POTASSIUM CHLORIDE. [Concomitant]
     Active Substance: POTASSIUM CHLORIDE
     Dosage: PREVENT HYPOKALEMIA
     Route: 042
     Dates: start: 20140926, end: 20140926
  41. INDOMETHACIN. [Concomitant]
     Active Substance: INDOMETHACIN
     Indication: PYREXIA
     Route: 054
     Dates: start: 20140905, end: 20140905
  42. RIBOFLAVIN SODIUM PHOSPHATE [Concomitant]
     Dosage: INDICATION: ANTI-INFLAMATORY.
     Route: 042
     Dates: start: 20141017, end: 20141020
  43. TRASTUZUMAB. [Suspect]
     Active Substance: TRASTUZUMAB
     Indication: HER-2 POSITIVE GASTRIC CANCER
     Dosage: LOADING DOSE, LAST DOSE (416 MG) PRIOR TO EVENT ON 04/SEP/2014
     Route: 042
     Dates: start: 20140904
  44. CAPECITABINE. [Suspect]
     Active Substance: CAPECITABINE
     Indication: HER-2 POSITIVE GASTRIC CANCER
     Dosage: MOST RECENT DOSE PRIOR TO THE EVENT WAS RECEIVED ON 05/SEP/2014
     Route: 048
     Dates: start: 20140904
  45. LANSOPRAZOLE. [Concomitant]
     Active Substance: LANSOPRAZOLE
     Route: 042
     Dates: start: 20141017, end: 20141020
  46. INSULIN [Concomitant]
     Active Substance: INSULIN NOS
     Dosage: DOSE: 400 U??INDICATION: PROMOTE GLUCOSE UTILIZATION
     Route: 042
     Dates: start: 20140905, end: 20140905
  47. INSULIN [Concomitant]
     Active Substance: INSULIN NOS
     Dosage: DOSE: 6 U?INDICATION: PROMOTING ABSORPTION OF GLUCOSE.
     Route: 042
     Dates: start: 20141017, end: 20141017
  48. TORSEMIDE. [Concomitant]
     Active Substance: TORSEMIDE
     Indication: SECONDARY HYPERTENSION
     Route: 042
     Dates: start: 20140926, end: 20140926
  49. MOXIFLOXACIN. [Concomitant]
     Active Substance: MOXIFLOXACIN
     Indication: INFECTION
     Route: 042
     Dates: start: 20140905, end: 20140905
  50. MOXIFLOXACIN HYDROCHLORIDE. [Concomitant]
     Active Substance: MOXIFLOXACIN HYDROCHLORIDE
     Indication: INFECTION PROPHYLAXIS
     Route: 042
     Dates: start: 20140905, end: 20140912
  51. PLACEBO [Suspect]
     Active Substance: UNSPECIFIED INGREDIENT
     Indication: HER-2 POSITIVE GASTRIC CANCER
     Dosage: LOADING DOSE?LAST DOSE PRIOR TO EVENT ON 04/SEP/2014
     Route: 042
     Dates: start: 20141204

REACTIONS (1)
  - Hepatic function abnormal [Recovered/Resolved]

NARRATIVE: CASE EVENT DATE: 20140905
